FAERS Safety Report 11911945 (Version 2)
Quarter: 2016Q1

REPORT INFORMATION
  Report Type: Spontaneous
  Country: FR (occurrence: FR)
  Receive Date: 20160112
  Receipt Date: 20160115
  Transmission Date: 20160526
  Serious: Yes (Hospitalization, Other)
  Sender: FDA-Public Use
  Company Number: FR-PFIZER INC-2016004533

PATIENT
  Age: 72 Year
  Sex: Male
  Weight: 85 kg

DRUGS (20)
  1. ZYLORIC [Suspect]
     Active Substance: ALLOPURINOL
     Indication: HYPERURICAEMIA
     Dosage: 100 MG, DAILY
     Route: 048
     Dates: start: 201412, end: 20151210
  2. CALCIPARINE [Concomitant]
     Active Substance: HEPARIN CALCIUM
     Dosage: 0.2 ML, 2X/DAY
  3. PAROXETINE HYDROCHLORIDE. [Suspect]
     Active Substance: PAROXETINE HYDROCHLORIDE
     Dosage: 20 MG, DAILY
     Route: 048
     Dates: start: 2007
  4. BISOCE [Suspect]
     Active Substance: BISOPROLOL
     Indication: MYOCARDIAL ISCHAEMIA
     Dosage: 5 MG, DAILY
     Route: 048
     Dates: start: 2007
  5. ATARAX [Concomitant]
     Active Substance: HYDROXYZINE\HYDROXYZINE HYDROCHLORIDE
     Dosage: 25 MG, 1X/DAY
  6. DIPROSONE [Concomitant]
     Active Substance: BETAMETHASONE DIPROPIONATE
     Dosage: UNK, 1X/DAY
  7. RENVELA [Concomitant]
     Active Substance: SEVELAMER CARBONATE
     Dosage: 800 MG, 3X/DAY
  8. LASILIX [Concomitant]
     Active Substance: FUROSEMIDE
     Dosage: 250 MG, 1X/DAY
  9. TRIATEC [Suspect]
     Active Substance: RAMIPRIL
     Dosage: UNK
     Route: 048
  10. CRESTOR [Concomitant]
     Active Substance: ROSUVASTATIN CALCIUM
     Dosage: UNK
  11. TAHOR [Suspect]
     Active Substance: ATORVASTATIN CALCIUM
     Indication: MYOCARDIAL ISCHAEMIA
     Dosage: 20 MG, DAILY
     Route: 048
     Dates: start: 201504
  12. TERBUTALINE [Concomitant]
     Active Substance: TERBUTALINE
     Dosage: 5 MG, 3X/DAY
  13. INEXIUM [Concomitant]
     Active Substance: ESOMEPRAZOLE
     Dosage: 20 MG, 1X/DAY
  14. CALCIDIA [Concomitant]
     Active Substance: CALCIUM POLYCARBOPHIL
     Dosage: 1 DF, 3X/DAY
  15. LASILIX [Concomitant]
     Active Substance: FUROSEMIDE
     Dosage: 500 MG, DAILY
  16. LEVOTHYROX [Concomitant]
     Active Substance: LEVOTHYROXINE
     Dosage: 100 UG, 1X/DAY
  17. KARDEGIC [Concomitant]
     Active Substance: ASPIRIN LYSINE
     Dosage: 75 MG, 1X/DAY
  18. UN ALFA [Concomitant]
     Active Substance: ALFACALCIDOL
     Dosage: 0.25 UG, DAILY
  19. CARDENSIEL [Concomitant]
     Active Substance: BISOPROLOL FUMARATE
     Dosage: UNK
     Dates: start: 2007
  20. AMOXICILLINE [Concomitant]
     Active Substance: AMOXICILLIN
     Dosage: 1 G, 3X/DAY
     Dates: start: 20151123

REACTIONS (2)
  - Interstitial lung disease [Not Recovered/Not Resolved]
  - Traumatic lung injury [Not Recovered/Not Resolved]

NARRATIVE: CASE EVENT DATE: 2015
